FAERS Safety Report 15347161 (Version 1)
Quarter: 2018Q3

REPORT INFORMATION
  Report Type: Spontaneous
  Country: US (occurrence: US)
  Receive Date: 20180904
  Receipt Date: 20180904
  Transmission Date: 20181010
  Serious: No
  Sender: FDA-Public Use
  Company Number: US-BIOGEN-2013BI067886

PATIENT
  Age: 32 Year
  Sex: Female

DRUGS (2)
  1. MINOCYCLINE HCL [Concomitant]
     Active Substance: MINOCYCLINE HYDROCHLORIDE
     Route: 065
  2. AVONEX [Suspect]
     Active Substance: INTERFERON BETA-1A
     Indication: MULTIPLE SCLEROSIS
     Dosage: ?INJECT 30 MCG?INTRAMUSCULAR?EVERY WEEK
     Route: 030
     Dates: start: 20130408

REACTIONS (3)
  - Injection site pain [Not Recovered/Not Resolved]
  - Influenza like illness [Unknown]
  - Pruritus [Unknown]

NARRATIVE: CASE EVENT DATE: 201304
